FAERS Safety Report 8530375-3 (Version None)
Quarter: 2012Q3

REPORT INFORMATION
  Report Type: 
  Country: None (occurrence: None)
  Receive Date: 20120723
  Receipt Date: 20120712
  Transmission Date: 20120928
  Serious: Yes (Hospitalization)
  Sender: FDA-Public Use
  Company Number: JP-009507513-1207JPN003649

PATIENT

DRUGS (1)
  1. INTRON A [Suspect]
     Dosage: DOSAGE PER DAY IS UNCERTAIN.
     Route: 030
     Dates: start: 20050101

REACTIONS (1)
  - TRACHEAL PAPILLOMA [None]
